FAERS Safety Report 8234068-1 (Version None)
Quarter: 2012Q1

REPORT INFORMATION
  Report Type: 
  Country: None (occurrence: None)
  Receive Date: 20120326
  Receipt Date: 20120326
  Transmission Date: 20120608
  Serious: Yes (Other)
  Sender: FDA-Public Use
  Company Number: None

PATIENT
  Age: 64 Year
  Sex: Male
  Weight: 74.842 kg

DRUGS (2)
  1. METOPROLOL SUCCINATE [Suspect]
  2. METOPROLOL SUCCINATE [Suspect]
     Indication: ARRHYTHMIA
     Dosage: 50.0 MG
     Route: 048
     Dates: start: 20120307, end: 20120319

REACTIONS (5)
  - ARRHYTHMIA [None]
  - PRODUCT SUBSTITUTION ISSUE [None]
  - PRODUCT COUNTERFEIT [None]
  - PRODUCT MEASURED POTENCY ISSUE [None]
  - CONDITION AGGRAVATED [None]
